FAERS Safety Report 16779900 (Version 2)
Quarter: 2019Q3

REPORT INFORMATION
  Report Type: Spontaneous
  Country: US (occurrence: US)
  Receive Date: 20190906
  Receipt Date: 20190918
  Transmission Date: 20191005
  Serious: Yes (Other)
  Sender: FDA-Public Use
  Company Number: PHEH2019US036621

PATIENT
  Age: 16 Year
  Sex: Male
  Weight: 78 kg

DRUGS (5)
  1. KYMRIAH [Suspect]
     Active Substance: TISAGENLECLEUCEL
     Indication: ACUTE LYMPHOCYTIC LEUKAEMIA RECURRENT
     Dosage: 16 ML, ONCE/SINGLE
     Route: 042
     Dates: start: 20190725, end: 20190725
  2. TOBRAMYCIN. [Concomitant]
     Active Substance: TOBRAMYCIN
     Indication: PRODUCT USED FOR UNKNOWN INDICATION
     Route: 065
  3. VANCOMYCIN [Concomitant]
     Active Substance: VANCOMYCIN
     Indication: PRODUCT USED FOR UNKNOWN INDICATION
     Route: 065
  4. FLUCONAZOLE. [Concomitant]
     Active Substance: FLUCONAZOLE
     Indication: PRODUCT USED FOR UNKNOWN INDICATION
     Route: 065
  5. LEVETIRACETAM. [Concomitant]
     Active Substance: LEVETIRACETAM
     Indication: PRODUCT USED FOR UNKNOWN INDICATION
     Route: 065

REACTIONS (30)
  - Tachycardia [Recovered/Resolved]
  - Blood fibrinogen increased [Unknown]
  - Neurotoxicity [Recovered/Resolved]
  - Seizure [Recovered/Resolved]
  - Fibrin D dimer increased [Unknown]
  - International normalised ratio increased [Unknown]
  - Platelet count decreased [Unknown]
  - Bruxism [Unknown]
  - Dyskinesia [Unknown]
  - Hypotension [Recovered/Resolved]
  - Dizziness [Unknown]
  - Pyrexia [Recovered/Resolved]
  - Muscle rigidity [Unknown]
  - Activated partial thromboplastin time prolonged [Unknown]
  - Headache [Unknown]
  - Serum ferritin increased [Unknown]
  - Lymphocyte count decreased [Unknown]
  - Blood potassium decreased [Unknown]
  - Blood calcium decreased [Unknown]
  - Musculoskeletal stiffness [Unknown]
  - C-reactive protein increased [Unknown]
  - Aspartate aminotransferase decreased [Unknown]
  - Blood urea decreased [Unknown]
  - White blood cell count decreased [Unknown]
  - Cytokine release syndrome [Recovered/Resolved]
  - Prothrombin time prolonged [Unknown]
  - Thrombin time prolonged [Unknown]
  - Alanine aminotransferase decreased [Unknown]
  - Red blood cell count decreased [Unknown]
  - Blood albumin decreased [Unknown]

NARRATIVE: CASE EVENT DATE: 20190727
